FAERS Safety Report 7677220-6 (Version None)
Quarter: 2011Q3

REPORT INFORMATION
  Report Type: 
  Country: None (occurrence: None)
  Receive Date: 20110811
  Receipt Date: 20110801
  Transmission Date: 20111222
  Serious: Yes (Other)
  Sender: FDA-Public Use
  Company Number: US-JNJFOC-20110801576

PATIENT
  Sex: Male
  Weight: 90.72 kg

DRUGS (5)
  1. LORAZEPAM [Concomitant]
     Indication: ANXIETY
     Route: 048
  2. REMICADE [Suspect]
     Route: 042
     Dates: start: 20110101
  3. REMICADE [Suspect]
     Indication: COLITIS ULCERATIVE
     Route: 042
     Dates: start: 20110801
  4. IMURAN [Concomitant]
     Indication: COLITIS ULCERATIVE
     Route: 048
     Dates: start: 20090101
  5. CITALOPRAM [Concomitant]
     Indication: DEPRESSION
     Route: 048
     Dates: start: 20090101

REACTIONS (5)
  - INJECTION SITE SWELLING [None]
  - INFUSION RELATED REACTION [None]
  - CHONDROPATHY [None]
  - INFUSION SITE EXTRAVASATION [None]
  - ARTHRALGIA [None]
